FAERS Safety Report 6345777-3 (Version None)
Quarter: 2009Q3

REPORT INFORMATION
  Report Type: 
  Country: None (occurrence: None)
  Receive Date: 20090909
  Receipt Date: 20090908
  Transmission Date: 20100115
  Serious: Yes (Other)
  Sender: FDA-Public Use
  Company Number: A0806282A

PATIENT
  Age: 27 Year
  Sex: Female

DRUGS (1)
  1. ALLI [Suspect]
     Route: 048
     Dates: start: 20090813, end: 20090816

REACTIONS (2)
  - ABDOMINAL PAIN [None]
  - HEPATIC ENZYME INCREASED [None]
